FAERS Safety Report 15882712 (Version 7)
Quarter: 2021Q4

REPORT INFORMATION
  Report Type: Spontaneous
  Country: DE (occurrence: DE)
  Receive Date: 20190129
  Receipt Date: 20211220
  Transmission Date: 20220303
  Serious: Yes (Other)
  Sender: FDA-Public Use
  Company Number: DE-AUROBINDO-AUR-APL-2019-003135

PATIENT
  Sex: Female
  Weight: 82 kg

DRUGS (5)
  1. LETROZOLE [Suspect]
     Active Substance: LETROZOLE
     Indication: Breast cancer
     Dosage: 2.5 MILLIGRAM, ONCE A DAY
     Route: 048
     Dates: start: 20180907, end: 20181203
  2. IBRANCE [Suspect]
     Active Substance: PALBOCICLIB
     Indication: Breast cancer metastatic
     Dosage: 100 MILLIGRAM (100 MG, QD (SCHEMA 21 DAYS INTAKE, 7 DAYS PAUSE)), ONCE A DAY
     Route: 048
     Dates: start: 20210531, end: 20210830
  3. IBRANCE [Suspect]
     Active Substance: PALBOCICLIB
     Dosage: 75 MILLIGRAM (75 MG, QD (SCHEMA 21 DAYS INTAKE, 7 DAYS PAUSE)), ONCE A DAY
     Route: 048
     Dates: start: 20210906
  4. KISQALI [Suspect]
     Active Substance: RIBOCICLIB
     Indication: Breast cancer
     Dosage: 600 MILLIGRAM, ONCE A DAY
     Route: 048
     Dates: start: 20180907, end: 20180927
  5. KISQALI [Suspect]
     Active Substance: RIBOCICLIB
     Dosage: 400 MILLIGRAM (400 MG, QD (SCHEMA 21 DAYS INTAKE, 7 DAYS PAUSE) ), ONCE A DAY
     Route: 048
     Dates: start: 20180928, end: 20181126

REACTIONS (2)
  - Neutropenia [Recovering/Resolving]
  - Anaemia [Recovered/Resolved]

NARRATIVE: CASE EVENT DATE: 20181123
